FAERS Safety Report 20005920 (Version 1)
Quarter: 2021Q4

REPORT INFORMATION
  Report Type: Spontaneous
  Country: JP (occurrence: JP)
  Receive Date: 20211028
  Receipt Date: 20211028
  Transmission Date: 20220304
  Serious: Yes (Hospitalization, Other)
  Sender: FDA-Public Use
  Company Number: JP-MLMSERVICE-20211015-3171170-1

PATIENT
  Age: 46 Year
  Sex: Female

DRUGS (2)
  1. TRIAMCINOLONE ACETONIDE [Suspect]
     Active Substance: TRIAMCINOLONE ACETONIDE
     Indication: Metatarsalgia
     Dosage: 1 DOSAGE FORM(TOTAL), MULTIPLE
     Route: 065
  2. BETAMETHASONE [Suspect]
     Active Substance: BETAMETHASONE
     Indication: Metatarsalgia
     Dosage: 1 DOSAGE FORM(TOTAL)
     Route: 065

REACTIONS (1)
  - Joint dislocation [Recovered/Resolved]
